FAERS Safety Report 6808252-5 (Version None)
Quarter: 2010Q2

REPORT INFORMATION
  Report Type: 
  Country: None (occurrence: None)
  Receive Date: 20100629
  Receipt Date: 20090421
  Transmission Date: 20101027
  Serious: Yes (Other)
  Sender: FDA-Public Use
  Company Number: US-PFIZER INC-2009196281

PATIENT
  Sex: Female

DRUGS (2)
  1. LINEZOLID [Suspect]
     Indication: CELLULITIS
     Route: 048
     Dates: start: 20090306
  2. HYDROMORPHONE [Concomitant]
     Dosage: UNK

REACTIONS (1)
  - HYPERSENSITIVITY [None]
